FAERS Safety Report 4627284-9 (Version None)
Quarter: 2005Q2

REPORT INFORMATION
  Report Type: 
  Country: None (occurrence: None)
  Receive Date: 20050405
  Receipt Date: 20050221
  Transmission Date: 20051028
  Serious: Yes (Death)
  Sender: FDA-Public Use
  Company Number: GB-BOEHRINGER INGELHEIM PHARMACEUTICALS, INC.-2005-UK-00282UK

PATIENT
  Sex: Male

DRUGS (14)
  1. TIOTROPIUM (00015/0190/A) [Suspect]
     Indication: CHRONIC OBSTRUCTIVE PULMONARY DISEASE
  2. HUMULIN [Concomitant]
     Dosage: 100 UNITS / ML
  3. HUMALOG [Concomitant]
     Dosage: 100 IU/ML
  4. SALBUTAMOL CFC FREE [Concomitant]
     Dosage: NOT REPORTED
     Route: 055
  5. BUMETANIDE [Concomitant]
     Dosage: NOT REPORTED
  6. TRAMADOL HCL [Concomitant]
     Dosage: NOT REPORTED
  7. SERETIDE [Concomitant]
     Dosage: NOT REPORTED
  8. MONTELUKAST [Concomitant]
     Dosage: NOT REPORTED
  9. NYSTATIN [Concomitant]
     Dosage: NOT REPORTED
  10. LISINOPRIL [Concomitant]
     Dosage: NOT REPORTED
  11. FOSAMAX [Concomitant]
     Dosage: NOT REPORTED
  12. PARACETAMOL [Concomitant]
     Dosage: NOT REPORTED
  13. HUMULIN M3 [Concomitant]
     Dosage: 100 UNITS/ML, 3 ML CARTRIDGE
  14. ONE TOUCH ULTRA BIOSENSOR STRIPS [Concomitant]

REACTIONS (1)
  - LOBAR PNEUMONIA [None]
